FAERS Safety Report 6187279-3 (Version None)
Quarter: 2009Q2

REPORT INFORMATION
  Report Type: 
  Country: None (occurrence: None)
  Receive Date: 20090508
  Receipt Date: 20090427
  Transmission Date: 20091009
  Serious: Yes (Hospitalization)
  Sender: FDA-Public Use
  Company Number: 233249K09USA

PATIENT
  Age: 50 Year
  Sex: Female

DRUGS (4)
  1. REBIF [Suspect]
     Indication: MULTIPLE SCLEROSIS
     Dosage: SEE IMAGE, INTRAVENOUS
     Route: 042
     Dates: start: 20090216, end: 20090301
  2. REBIF [Suspect]
     Indication: MULTIPLE SCLEROSIS
     Dosage: SEE IMAGE, INTRAVENOUS
     Route: 042
     Dates: start: 20090301, end: 20090301
  3. REBIF [Suspect]
     Indication: MULTIPLE SCLEROSIS
     Dosage: SEE IMAGE, INTRAVENOUS
     Route: 042
     Dates: start: 20090316, end: 20090317
  4. REBIF [Suspect]
     Indication: MULTIPLE SCLEROSIS
     Dosage: SEE IMAGE, INTRAVENOUS
     Route: 042
     Dates: start: 20090421

REACTIONS (4)
  - ANXIETY DISORDER [None]
  - CONDITION AGGRAVATED [None]
  - MULTIPLE SCLEROSIS [None]
  - URINARY TRACT INFECTION [None]
